FAERS Safety Report 8600964-6 (Version None)
Quarter: 2012Q3

REPORT INFORMATION
  Report Type: 
  Country: None (occurrence: None)
  Receive Date: 20120817
  Receipt Date: 20120814
  Transmission Date: 20120928
  Serious: Yes (Hospitalization)
  Sender: FDA-Public Use
  Company Number: FR-BAYER-2012-084320

PATIENT
  Age: 91 Year
  Sex: Female

DRUGS (7)
  1. PERINDOPRIL ERBUMINE [Concomitant]
  2. DIGOXIN [Concomitant]
  3. BISOPROLOL FUMARATE [Concomitant]
     Dosage: DAILY DOSE 2.5 MG
  4. COUMADIN [Concomitant]
  5. NEXIUM [Concomitant]
  6. CIPROFLOXACIN [Suspect]
     Indication: DEVICE RELATED INFECTION
     Dosage: 400 MG, TID
     Route: 042
     Dates: start: 20120720, end: 20120727
  7. TICARPEN [Suspect]
     Dosage: 5 G, TID
     Route: 042
     Dates: start: 20120720, end: 20120727

REACTIONS (4)
  - SOMNOLENCE [None]
  - DEHYDRATION [None]
  - VISUAL IMPAIRMENT [None]
  - INCOHERENT [None]
